FAERS Safety Report 15175167 (Version 1)
Quarter: 2018Q3

REPORT INFORMATION
  Report Type: Report from Study
  Country: US (occurrence: US)
  Receive Date: 20180720
  Receipt Date: 20180720
  Transmission Date: 20181010
  Serious: No
  Sender: FDA-Public Use
  Company Number: US-AMGEN-USASL2018066397

PATIENT
  Age: 68 Year
  Sex: Female

DRUGS (1)
  1. REPATHA [Suspect]
     Active Substance: EVOLOCUMAB
     Indication: BLOOD CHOLESTEROL INCREASED
     Dosage: 140 MG, Q2WK
     Route: 065

REACTIONS (8)
  - Musculoskeletal pain [Unknown]
  - Rhinorrhoea [Unknown]
  - Myalgia [Unknown]
  - Rash [Unknown]
  - Injection site haemorrhage [Unknown]
  - Cough [Unknown]
  - Back pain [Unknown]
  - Injection site pain [Unknown]
